FAERS Safety Report 17905116 (Version 1)
Quarter: 2020Q2

REPORT INFORMATION
  Report Type: Spontaneous
  Country: US (occurrence: US)
  Receive Date: 20200617
  Receipt Date: 20200617
  Transmission Date: 20200714
  Serious: No
  Sender: FDA-Public Use
  Company Number: US-BEH-2020118302

PATIENT
  Age: 67 Year
  Sex: Female

DRUGS (10)
  1. HIZENTRA [Suspect]
     Active Substance: HUMAN IMMUNOGLOBULIN G
     Indication: RESPIRATORY DISORDER
     Dosage: 9 GRAM, QW
     Route: 058
     Dates: start: 20190507
  2. HIZENTRA [Suspect]
     Active Substance: HUMAN IMMUNOGLOBULIN G
     Dosage: UNK
     Route: 058
  3. OLOPATADINE. [Concomitant]
     Active Substance: OLOPATADINE
  4. SF 5000 PLUS [Concomitant]
     Active Substance: SODIUM FLUORIDE
  5. HIZENTRA [Suspect]
     Active Substance: HUMAN IMMUNOGLOBULIN G
     Dosage: UNK
     Route: 058
  6. LORAZEPAM. [Concomitant]
     Active Substance: LORAZEPAM
  7. SPIRIVA [Concomitant]
     Active Substance: TIOTROPIUM BROMIDE MONOHYDRATE
  8. ATENOLOL. [Concomitant]
     Active Substance: ATENOLOL
  9. LOSARTAN. [Concomitant]
     Active Substance: LOSARTAN
  10. CLOTRIMAZOLE. [Concomitant]
     Active Substance: CLOTRIMAZOLE

REACTIONS (3)
  - Injection site swelling [Not Recovered/Not Resolved]
  - No adverse event [Unknown]
  - Product use in unapproved indication [Unknown]

NARRATIVE: CASE EVENT DATE: 20200603
